FAERS Safety Report 16307991 (Version 2)
Quarter: 2019Q3

REPORT INFORMATION
  Report Type: Report from Study
  Country: US (occurrence: US)
  Receive Date: 20190514
  Receipt Date: 20190918
  Transmission Date: 20191004
  Serious: Yes (Hospitalization, Other)
  Sender: FDA-Public Use
  Company Number: US-ROCHE-2311238

PATIENT
  Age: 67 Year
  Sex: Female
  Weight: 61.4 kg

DRUGS (3)
  1. BEVACIZUMAB. [Suspect]
     Active Substance: BEVACIZUMAB
     Indication: OVARIAN EPITHELIAL CANCER
     Dosage: ON  29/JUN/2018, SHE RECEIVED LAST DOSE OF BEVACIZUMAB.
     Route: 042
     Dates: start: 20180308
  2. ATEZOLIZUMAB. [Suspect]
     Active Substance: ATEZOLIZUMAB
     Indication: OVARIAN EPITHELIAL CANCER
     Dosage: ON  07/SEP/2018, SHE RECEIVED LAST DOSE OF ATEZOLIZUMAB.
     Route: 041
     Dates: start: 20180308
  3. PEGYLATED LIPOSOMAL DOXORUBICIN HYDROCHLORIDE [Suspect]
     Active Substance: DOXORUBICIN HYDROCHLORIDE
     Indication: OVARIAN EPITHELIAL CANCER
     Route: 042
     Dates: start: 20180907

REACTIONS (5)
  - Hypertension [Unknown]
  - Restrictive cardiomyopathy [Unknown]
  - Cardiac failure [Unknown]
  - Dyspnoea [Unknown]
  - Acute kidney injury [Unknown]

NARRATIVE: CASE EVENT DATE: 20180906
